FAERS Safety Report 8880060 (Version 1)
Quarter: 2012Q4

REPORT INFORMATION
  Report Type: 
  Country: US (occurrence: US)
  Receive Date: 20121031
  Receipt Date: 20121031
  Transmission Date: 20130627
  Serious: No
  Sender: FDA-Public Use
  Company Number: US-VERTEX PHARMACEUTICAL INC.-2012-023781

PATIENT
  Age: 7 Year
  Sex: Female

DRUGS (1)
  1. KALYDECO [Suspect]
     Indication: CYSTIC FIBROSIS
     Dosage: UNK
     Dates: start: 20120628

REACTIONS (5)
  - Pyrexia [Unknown]
  - Dry throat [Unknown]
  - Sinus disorder [Unknown]
  - Off label use [Unknown]
  - Drug ineffective [Unknown]
